FAERS Safety Report 24636375 (Version 1)
Quarter: 2024Q4

REPORT INFORMATION
  Report Type: Spontaneous
  Country: US (occurrence: US)
  Receive Date: 20241119
  Receipt Date: 20241119
  Transmission Date: 20250115
  Serious: Yes (Death, Other)
  Sender: ROCHE
  Company Number: US-ROCHE-10000134768

PATIENT
  Sex: Male
  Weight: 86.18 kg

DRUGS (3)
  1. RITUXAN [Suspect]
     Active Substance: RITUXIMAB
     Indication: Rheumatoid arthritis
     Route: 058
  2. PREDNISONE [Concomitant]
     Active Substance: PREDNISONE
  3. XELJANZ [Concomitant]
     Active Substance: TOFACITINIB CITRATE

REACTIONS (3)
  - Death [Fatal]
  - Leukaemia [Recovered/Resolved]
  - Anaphylactic reaction [Unknown]

NARRATIVE: CASE EVENT DATE: 20180101
